FAERS Safety Report 8958087 (Version 1)
Quarter: 2012Q4

REPORT INFORMATION
  Report Type: 
  Country: IT (occurrence: IT)
  Receive Date: 20121211
  Receipt Date: 20121211
  Transmission Date: 20130627
  Serious: Yes (Hospitalization)
  Sender: FDA-Public Use
  Company Number: PHHY2012IT113142

PATIENT
  Sex: Female

DRUGS (2)
  1. LORAZEPAM [Suspect]
     Dosage: 9 DF, total
     Route: 048
     Dates: start: 20121203, end: 20121203
  2. TACHIPIRINA [Suspect]
     Dosage: 9 DF, total
     Route: 048
     Dates: start: 20121203, end: 20121203

REACTIONS (4)
  - Suicide attempt [Unknown]
  - Toxicity to various agents [Recovering/Resolving]
  - Inappropriate affect [Recovering/Resolving]
  - Agitation [Recovering/Resolving]
